FAERS Safety Report 11946228 (Version 1)
Quarter: 2016Q1

REPORT INFORMATION
  Report Type: Report from Study
  Country: US (occurrence: US)
  Receive Date: 20160125
  Receipt Date: 20160125
  Transmission Date: 20160526
  Serious: No
  Sender: FDA-Public Use
  Company Number: US-ABBVIE-14P-163-1242597-00

PATIENT
  Sex: Male

DRUGS (5)
  1. ROTAVIRUS VACCINE [Suspect]
     Active Substance: HUMAN ROTAVIRUS A
     Indication: PROPHYLAXIS
     Route: 065
     Dates: start: 20150302, end: 20150302
  2. HUMIRA [Suspect]
     Active Substance: ADALIMUMAB
     Route: 063
  3. DTAP VACCINE [Suspect]
     Active Substance: DIPHTHERIA AND TETANUS TOXOIDS AND ACELLULAR PERTUSSIS VACCINE ADSORBED
     Indication: PROPHYLAXIS
     Route: 065
     Dates: start: 20150302, end: 20150302
  4. INFLUENZA VACCINE [Suspect]
     Active Substance: INFLUENZA VIRUS VACCINE
     Indication: ANTIVIRAL PROPHYLAXIS
     Route: 065
     Dates: start: 20150302, end: 20150302
  5. HUMIRA [Suspect]
     Active Substance: ADALIMUMAB
     Indication: MATERNAL EXPOSURE TIMING UNSPECIFIED
     Route: 064

REACTIONS (5)
  - Exposure during breast feeding [Unknown]
  - Normal newborn [Unknown]
  - Foetal exposure during pregnancy [Unknown]
  - Irritability [Not Recovered/Not Resolved]
  - Flatulence [Not Recovered/Not Resolved]

NARRATIVE: CASE EVENT DATE: 20150302
